FAERS Safety Report 20298608 (Version 1)
Quarter: 2022Q1

REPORT INFORMATION
  Report Type: Spontaneous
  Country: US (occurrence: None)
  Receive Date: 20220104
  Receipt Date: 20220104
  Transmission Date: 20220423
  Serious: No
  Sender: FDA-Public Use
  Company Number: None

PATIENT
  Age: 23 Year
  Sex: Male

DRUGS (1)
  1. HUMIRA [Suspect]
     Active Substance: ADALIMUMAB
     Indication: Hidradenitis
     Dosage: INJECTE 40MG SUBCUTANEOUSLY ONCE A WEEK   AS DIRECTED. STARTING ON DAY 29
     Route: 058
     Dates: start: 202001

REACTIONS (4)
  - Pyrexia [None]
  - Headache [None]
  - Nasopharyngitis [None]
  - Therapy interrupted [None]
